FAERS Safety Report 8599919-X (Version None)
Quarter: 2012Q3

REPORT INFORMATION
  Report Type: 
  Country: None (occurrence: None)
  Receive Date: 20120816
  Receipt Date: 20120716
  Transmission Date: 20120928
  Serious: No
  Sender: FDA-Public Use
  Company Number: US-AMGEN-USASP2012044145

PATIENT
  Age: 42 Year
  Sex: Female

DRUGS (1)
  1. NPLATE [Suspect]
     Indication: PLATELET COUNT DECREASED
     Dosage: UNK
     Route: 058

REACTIONS (1)
  - BONE PAIN [None]
